FAERS Safety Report 4832592-2 (Version None)
Quarter: 2005Q4

REPORT INFORMATION
  Report Type: 
  Country: None (occurrence: None)
  Receive Date: 20051121
  Receipt Date: 20051109
  Transmission Date: 20060501
  Serious: Yes (Other)
  Sender: FDA-Public Use
  Company Number: US-JNJFOC-20051102474

PATIENT
  Sex: Female
  Weight: 89.81 kg

DRUGS (13)
  1. REMICADE [Suspect]
     Route: 042
  2. REMICADE [Suspect]
     Indication: RHEUMATOID ARTHRITIS
     Route: 042
  3. PREDNISONE [Concomitant]
     Indication: RHEUMATOID ARTHRITIS
     Dosage: 3-5 MG
  4. METHOTREXATE [Concomitant]
     Indication: RHEUMATOID ARTHRITIS
  5. PRILOSEC [Concomitant]
  6. CALCIUM GLUCONATE [Concomitant]
  7. VITAMIN D [Concomitant]
  8. PREMARIN [Concomitant]
     Indication: HORMONE REPLACEMENT THERAPY
  9. TIMOPTIC [Concomitant]
     Indication: GLAUCOMA
  10. ADVIL [Concomitant]
     Indication: PAIN
     Dosage: EVERY FOUR HOURS AS NEEDED
  11. FOLIC ACID [Concomitant]
     Dosage: DAILY
  12. VITAMIN D [Concomitant]
  13. BIOTIN [Concomitant]

REACTIONS (1)
  - HISTOPLASMOSIS [None]
